FAERS Safety Report 5311516-8 (Version None)
Quarter: 2007Q2

REPORT INFORMATION
  Report Type: 
  Country: None (occurrence: None)
  Receive Date: 20070430
  Receipt Date: 20070423
  Transmission Date: 20071010
  Serious: Yes (Other)
  Sender: FDA-Public Use
  Company Number: GB-GLAXOSMITHKLINE-B0461215A

PATIENT
  Age: 58 Year
  Sex: Female
  Weight: 121 kg

DRUGS (1)
  1. AVANDAMET [Suspect]
     Route: 048
     Dates: start: 20060424, end: 20061204

REACTIONS (6)
  - BLISTER [None]
  - FLUID RETENTION [None]
  - HYPOAESTHESIA [None]
  - OSTEOMYELITIS [None]
  - SWELLING [None]
  - ULCER [None]
